FAERS Safety Report 5065661-5 (Version None)
Quarter: 2006Q3

REPORT INFORMATION
  Report Type: 
  Country: None (occurrence: None)
  Receive Date: 20060731
  Receipt Date: 20060726
  Transmission Date: 20061208
  Serious: Yes (Other)
  Sender: FDA-Public Use
  Company Number: FR-BRISTOL-MYERS SQUIBB COMPANY-13458898

PATIENT
  Age: 85 Year
  Sex: Female

DRUGS (2)
  1. APROVEL FILM-COATED TABS 150 MG [Suspect]
     Indication: HYPERTENSION
     Dosage: DURATION OF THERAPY:  APPROXIMATELY 3-4 MONTHS
     Route: 048
  2. LASILIX [Suspect]
     Indication: HYPERTENSION
     Dosage: DURATION OF THERAPY:  APPROXIMATELY 3-4 MONTHS
     Route: 048

REACTIONS (2)
  - HYPOCHLORAEMIA [None]
  - HYPONATRAEMIA [None]
